FAERS Safety Report 8773733 (Version 1)
Quarter: 2012Q4

REPORT INFORMATION
  Report Type: 
  Country: US (occurrence: US)
  Receive Date: 20120907
  Receipt Date: 20120907
  Transmission Date: 20130627
  Serious: Yes (Hospitalization)
  Sender: FDA-Public Use
  Company Number: US-COVIDIEN/TYCO HEALTHCARE/MALLINCKRODT-T201203324

PATIENT
  Age: 53 Year
  Sex: Male

DRUGS (1)
  1. SODIUM IODIDE (I 131) [Suspect]
     Indication: RADIOTHERAPY
     Dosage: 8 mCi, single

REACTIONS (1)
  - Thyrotoxic crisis [Recovering/Resolving]
